FAERS Safety Report 21784990 (Version 2)
Quarter: 2023Q1

REPORT INFORMATION
  Report Type: Report from Study
  Country: RU (occurrence: RU)
  Receive Date: 20221227
  Receipt Date: 20230104
  Transmission Date: 20230418
  Serious: Yes (Hospitalization)
  Sender: FDA-Public Use
  Company Number: RU-002147023-NVSC2022RU297350

PATIENT
  Age: 50 Year
  Sex: Female
  Weight: 79 kg

DRUGS (6)
  1. LETROZOLE [Suspect]
     Active Substance: LETROZOLE
     Indication: HER2 negative breast cancer
     Dosage: 2.5 MG, QD
     Route: 048
     Dates: start: 20191127
  2. GOSERELIN [Suspect]
     Active Substance: GOSERELIN
     Indication: HER2 negative breast cancer
     Dosage: 3.6 MG, EVERY 28 DAYS
     Route: 058
     Dates: start: 20191127
  3. BLOOD, BOVINE [Concomitant]
     Active Substance: BLOOD, BOVINE
     Indication: Dizziness
     Dosage: 40 MG, QD
     Route: 042
     Dates: start: 20221120, end: 20221127
  4. CAPTOPIRIL [Concomitant]
     Indication: Hypertension
     Dosage: 25 MG, QD
     Route: 048
     Dates: start: 20221117, end: 20221119
  5. CHOLECALCIFEROL [Concomitant]
     Active Substance: CHOLECALCIFEROL
     Indication: Prophylaxis
     Dosage: 2000 MEQ, QD
     Route: 048
     Dates: start: 20191128
  6. LOSARTAN [Concomitant]
     Active Substance: LOSARTAN
     Indication: Hypertension
     Dosage: 12.5 MG, QD
     Route: 048
     Dates: start: 20221201

REACTIONS (1)
  - Post procedural complication [Recovered/Resolved with Sequelae]

NARRATIVE: CASE EVENT DATE: 20221219
